FAERS Safety Report 6067072-2 (Version None)
Quarter: 2009Q1

REPORT INFORMATION
  Report Type: 
  Country: None (occurrence: None)
  Receive Date: 20090205
  Receipt Date: 20090130
  Transmission Date: 20090719
  Serious: Yes (Disabling)
  Sender: FDA-Public Use
  Company Number: IT-MERCK-0901ITA00027

PATIENT
  Age: 87 Year
  Sex: Female

DRUGS (5)
  1. FOSAMAX [Suspect]
     Indication: OSTEOPOROSIS
     Route: 048
     Dates: start: 20060101, end: 20081222
  2. ASPIRIN [Concomitant]
     Route: 065
  3. LANSOPRAZOLE [Concomitant]
     Route: 065
  4. LORAZEPAM [Concomitant]
     Route: 065
  5. THEOPHYLLINE [Concomitant]
     Route: 065

REACTIONS (3)
  - ACUTE PSYCHOSIS [None]
  - AGGRESSION [None]
  - DISORIENTATION [None]
